FAERS Safety Report 9973341 (Version 1)
Quarter: 2014Q1

REPORT INFORMATION
  Report Type: Not Available
  Country: GB (occurrence: GB)
  Receive Date: 20140306
  Receipt Date: 20140306
  Transmission Date: 20141002
  Serious: Yes (Hospitalization, Other)
  Sender: FDA-Public Use
  Company Number: GB-PURDUE-GBR-2014-0017237

PATIENT
  Age: 51 Year
  Sex: Female

DRUGS (6)
  1. THEOPHYLLINE [Suspect]
     Indication: PRODUCT USED FOR UNKNOWN INDICATION
     Route: 065
  2. XOLAIR [Suspect]
     Indication: ASTHMA
     Dosage: 600 MG, FORTNIGHTLY
     Route: 058
     Dates: start: 201211
  3. CEFATRIZINE [Concomitant]
     Dosage: 10 MG, UNK
  4. OMEPRAZOLE [Concomitant]
     Dosage: 20 MG, UNK
     Dates: start: 1994
  5. SYMBICORT [Concomitant]
     Dosage: 400 MG, BID
     Dates: start: 1992
  6. VENTOLIN                           /00139501/ [Concomitant]
     Dosage: UNK
     Dates: start: 1966

REACTIONS (5)
  - Chest pain [Recovered/Resolved]
  - Antasthmatic drug level above therapeutic [Unknown]
  - Arrhythmia [Recovered/Resolved with Sequelae]
  - Palpitations [Recovered/Resolved]
  - Tachycardia [Recovering/Resolving]
